FAERS Safety Report 21075362 (Version 1)
Quarter: 2022Q3

REPORT INFORMATION
  Report Type: Spontaneous
  Country: US (occurrence: None)
  Receive Date: 20220712
  Receipt Date: 20220712
  Transmission Date: 20221027
  Serious: Yes (Life-Threatening, Hospitalization)
  Sender: FDA-Public Use
  Company Number: None

PATIENT
  Age: 32 Year
  Sex: Female

DRUGS (2)
  1. PFIZER-BIONTECH COVID-19 VACCINE [Suspect]
     Active Substance: TOZINAMERAN
  2. NORETHINDRONE AND ETHINYL ESTRADIOL, AND FERROUS FUMARATE [Suspect]
     Active Substance: ETHINYL ESTRADIOL\NORETHINDRONE

REACTIONS (8)
  - Haematochezia [None]
  - Venous thrombosis [None]
  - Mesenteric vein thrombosis [None]
  - Splenic vein thrombosis [None]
  - Portal vein occlusion [None]
  - Mesenteric venous occlusion [None]
  - Splenic vein occlusion [None]
  - Hypercoagulation [None]

NARRATIVE: CASE EVENT DATE: 20211210
